FAERS Safety Report 7305065-5 (Version None)
Quarter: 2011Q1

REPORT INFORMATION
  Report Type: 
  Country: None (occurrence: None)
  Receive Date: 20110222
  Receipt Date: 20110126
  Transmission Date: 20110831
  Serious: No
  Sender: FDA-Public Use
  Company Number: US-B.I. PHARMACEUTICALS,INC./RIDGEFIELD-2010-BP-15161BP

PATIENT
  Age: 78 Year
  Sex: Male

DRUGS (12)
  1. ASA [Concomitant]
     Indication: CARDIAC DISORDER
     Dosage: 81 MG
  2. VITAMIN D [Concomitant]
  3. COREG CR [Concomitant]
     Indication: CARDIAC DISORDER
     Dosage: 80 MG
  4. WATER PILL [Concomitant]
     Indication: CARDIAC DISORDER
  5. TERAZOSIN [Concomitant]
     Indication: BENIGN PROSTATIC HYPERPLASIA
  6. NEXIUM [Concomitant]
     Indication: GASTRIC DISORDER
  7. PRADAXA [Suspect]
     Indication: ANTICOAGULANT THERAPY
  8. NEXIUM [Concomitant]
     Dosage: 40 MG
  9. PRADAXA [Suspect]
     Indication: ATRIAL FIBRILLATION
     Dosage: 300 MG
     Route: 048
     Dates: start: 20101215
  10. ULORIC [Concomitant]
     Indication: GOUT
  11. LASIX [Concomitant]
     Dosage: 80 MG
  12. DIGOXIN [Concomitant]
     Indication: CARDIAC DISORDER
     Dosage: 0.25 MG

REACTIONS (2)
  - ARTHRALGIA [None]
  - PAIN IN EXTREMITY [None]
